FAERS Safety Report 4888488-3 (Version None)
Quarter: 2006Q1

REPORT INFORMATION
  Report Type: 
  Country: None (occurrence: None)
  Receive Date: 20060123
  Receipt Date: 20060112
  Transmission Date: 20060701
  Serious: Yes (Other)
  Sender: FDA-Public Use
  Company Number: US-AVENTIS-200610428US

PATIENT
  Sex: Female

DRUGS (3)
  1. CLOMID [Suspect]
     Indication: INFERTILITY FEMALE
     Dates: start: 20050101
  2. OVIDREL [Suspect]
     Indication: INFERTILITY FEMALE
     Dosage: DOSE: UNK
     Dates: start: 20050101
  3. CRINONE [Suspect]
     Indication: INFERTILITY FEMALE
     Dosage: DOSE: 8%

REACTIONS (5)
  - ABORTION INDUCED [None]
  - BENIGN HYDATIDIFORM MOLE [None]
  - BLOOD HUMAN CHORIONIC GONADOTROPIN INCREASED [None]
  - DRUG EXPOSURE BEFORE PREGNANCY [None]
  - MULTIPLE PREGNANCY [None]
